FAERS Safety Report 10700254 (Version 1)
Quarter: 2015Q1

REPORT INFORMATION
  Report Type: Report from Study
  Country: IE (occurrence: IE)
  Receive Date: 20150109
  Receipt Date: 20150109
  Transmission Date: 20150721
  Serious: Yes (Death)
  Sender: FDA-Public Use
  Company Number: IE-AMGEN-IRLSL2015001184

PATIENT
  Age: 76 Year
  Sex: Male

DRUGS (17)
  1. PARAMOL                            /00020001/ [Concomitant]
  2. CALCICHEW [Concomitant]
     Active Substance: CALCIUM CARBONATE
  3. OROVITE [Concomitant]
  4. CLODEL                             /01220705/ [Concomitant]
  5. PATUPILONA [Concomitant]
  6. PREDNISOLONE. [Concomitant]
     Active Substance: PREDNISOLONE
  7. BURINEX [Concomitant]
     Active Substance: BUMETANIDE
  8. ADENURIC [Concomitant]
     Active Substance: FEBUXOSTAT
  9. FOLIC ACID. [Concomitant]
     Active Substance: FOLIC ACID
  10. ASPIRIN                            /00002701/ [Concomitant]
     Active Substance: ASPIRIN
  11. BISOP [Concomitant]
  12. ATORVASTATIN [Concomitant]
     Active Substance: ATORVASTATIN
  13. LECALPIN [Concomitant]
  14. RAMIPRIL. [Concomitant]
     Active Substance: RAMIPRIL
  15. GLYCERYL TRINITRATE [Concomitant]
     Active Substance: NITROGLYCERIN
  16. ARANESP [Suspect]
     Active Substance: DARBEPOETIN ALFA
     Indication: CHRONIC KIDNEY DISEASE
     Dosage: 30 MUG, QWK
     Route: 058
     Dates: start: 20110615
  17. ONE ALPHA [Concomitant]
     Active Substance: ALFACALCIDOL

REACTIONS (1)
  - Death [Fatal]

NARRATIVE: CASE EVENT DATE: 201410
